FAERS Safety Report 5032185-0 (Version None)
Quarter: 2006Q2

REPORT INFORMATION
  Report Type: 
  Country: None (occurrence: None)
  Receive Date: 20060619
  Receipt Date: 20060612
  Transmission Date: 20061013
  Serious: Yes (Other)
  Sender: FDA-Public Use
  Company Number: 2006074265

PATIENT
  Age: 51 Year
  Sex: Male

DRUGS (3)
  1. ATORVASTATIN CALCIUM [Suspect]
     Indication: ILL-DEFINED DISORDER
     Dosage: 10 MG DAILY, ORAL
     Route: 048
  2. ASPIRIN [Concomitant]
  3. ACE INHIBITOR NOS        (ACE INHIBITOR NOS) [Concomitant]

REACTIONS (2)
  - BILIRUBINURIA [None]
  - GAMMA-GLUTAMYLTRANSFERASE INCREASED [None]
